FAERS Safety Report 13194714 (Version 1)
Quarter: 2017Q1

REPORT INFORMATION
  Report Type: Spontaneous
  Country: US (occurrence: US)
  Receive Date: 20170207
  Receipt Date: 20170207
  Transmission Date: 20170428
  Serious: No
  Sender: FDA-Public Use
  Company Number: US-JAZZ-2016-US-019634

PATIENT
  Age: 57 Year
  Sex: Male

DRUGS (14)
  1. CLONIDINE. [Suspect]
     Active Substance: CLONIDINE
     Indication: NEUROPATHY PERIPHERAL
     Dosage: 0.999 ?G, QH
     Route: 037
     Dates: end: 201610
  2. BUPIVACAINE. [Suspect]
     Active Substance: BUPIVACAINE
     Indication: PAIN
     Dosage: UNK
     Route: 037
  3. SUDAFED [Concomitant]
     Active Substance: PSEUDOEPHEDRINE HYDROCHLORIDE
  4. DILAUDID [Suspect]
     Active Substance: HYDROMORPHONE HYDROCHLORIDE
     Indication: PAIN
     Dosage: UNK
     Route: 037
  5. AZELASTINE W/FLUTICASONE [Concomitant]
  6. PRIALT [Suspect]
     Active Substance: ZICONOTIDE ACETATE
     Indication: NEUROPATHY PERIPHERAL
     Dosage: 0.25 ?G, QH
     Route: 037
     Dates: end: 201610
  7. DILAUDID [Suspect]
     Active Substance: HYDROMORPHONE HYDROCHLORIDE
     Indication: NEUROPATHY PERIPHERAL
     Dosage: 0.458 ?G, QH
     Route: 037
     Dates: end: 201610
  8. PRIALT [Suspect]
     Active Substance: ZICONOTIDE ACETATE
     Indication: PAIN
     Dosage: UNK
     Route: 037
  9. CLONIDINE. [Suspect]
     Active Substance: CLONIDINE
     Indication: PAIN
     Dosage: UNK
     Route: 037
  10. ASPIRIN                            /00002701/ [Concomitant]
     Active Substance: ASPIRIN
  11. CENTRUM MEN [Concomitant]
  12. BUPIVACAINE. [Suspect]
     Active Substance: BUPIVACAINE
     Indication: NEUROPATHY PERIPHERAL
     Dosage: 0.059 MG, QH
     Route: 037
     Dates: end: 201610
  13. NUVIGIL [Concomitant]
     Active Substance: ARMODAFINIL
  14. CALCIUM [Concomitant]
     Active Substance: CALCIUM

REACTIONS (3)
  - Malaise [Unknown]
  - Device issue [Unknown]
  - Withdrawal syndrome [Unknown]

NARRATIVE: CASE EVENT DATE: 20161003
